FAERS Safety Report 8356144-5 (Version None)
Quarter: 2012Q1

REPORT INFORMATION
  Report Type: 
  Country: None (occurrence: None)
  Receive Date: 20120315
  Receipt Date: 20110607
  Transmission Date: 20120608
  Serious: Yes (Hospitalization, Other)
  Sender: FDA-Public Use
  Company Number: PHHY2011US25495

PATIENT
  Age: 31 Year
  Sex: Female

DRUGS (4)
  1. TRAZODONE HCL [Concomitant]
  2. CONTRACEPTIVES NOS (NO INGREDIENTS/SUBSTANCES) [Concomitant]
  3. LEXAPRO [Concomitant]
  4. GILENYA [Suspect]
     Indication: RELAPSING-REMITTING MULTIPLE SCLEROSIS
     Dosage: ORAL
     Route: 048
     Dates: start: 20101227, end: 20110323

REACTIONS (16)
  - MULTIPLE SCLEROSIS RELAPSE [None]
  - BRAIN HERNIATION [None]
  - COGNITIVE DISORDER [None]
  - HEMIPARESIS [None]
  - ASTHENIA [None]
  - CONVULSION [None]
  - UNRESPONSIVE TO STIMULI [None]
  - NERVOUSNESS [None]
  - APHASIA [None]
  - INFLUENZA [None]
  - HEADACHE [None]
  - DRUG INEFFECTIVE [None]
  - AGGRESSION [None]
  - PERSONALITY CHANGE [None]
  - DEHYDRATION [None]
  - CENTRAL NERVOUS SYSTEM LESION [None]
